FAERS Safety Report 8202645-X (Version None)
Quarter: 2012Q1

REPORT INFORMATION
  Report Type: 
  Country: None (occurrence: None)
  Receive Date: 20120312
  Receipt Date: 20120308
  Transmission Date: 20120608
  Serious: Yes (Hospitalization)
  Sender: FDA-Public Use
  Company Number: US-JNJFOC-20120300639

PATIENT
  Age: 24 Year
  Sex: Male

DRUGS (4)
  1. INVEGA [Suspect]
     Indication: SCHIZOPHRENIA
     Route: 048
     Dates: start: 20120125, end: 20120129
  2. INVEGA SUSTENNA [Suspect]
     Indication: SCHIZOPHRENIA
     Route: 030
     Dates: start: 20120217, end: 20120217
  3. ATIVAN [Concomitant]
     Indication: ANXIETY
     Route: 048
     Dates: start: 20120101
  4. INVEGA SUSTENNA [Suspect]
     Route: 030

REACTIONS (2)
  - PSYCHOTIC DISORDER [None]
  - CONDITION AGGRAVATED [None]
